FAERS Safety Report 23680180 (Version 1)
Quarter: 2024Q1

REPORT INFORMATION
  Report Type: Report from Study
  Country: AU (occurrence: AU)
  Receive Date: 20240327
  Receipt Date: 20240327
  Transmission Date: 20240409
  Serious: Yes (Hospitalization, Other)
  Sender: FDA-Public Use
  Company Number: AU-ABBVIE-5689161

PATIENT
  Sex: Female

DRUGS (12)
  1. CARBIDOPA\LEVODOPA [Suspect]
     Active Substance: CARBIDOPA\LEVODOPA
     Indication: Parkinson^s disease
     Dosage: 20MG/5MG/ML  MD 6ML,CD 1.6ML/HR, ED 1ML WITH 2 HOUR LOCKOUT
     Route: 050
     Dates: start: 202010
  2. CARBIDOPA\LEVODOPA [Suspect]
     Active Substance: CARBIDOPA\LEVODOPA
     Dosage: (DOSE REDUCED)
     Route: 050
  3. BENSERAZIDE\LEVODOPA [Concomitant]
     Active Substance: BENSERAZIDE\LEVODOPA
     Indication: Product used for unknown indication
     Dosage: LEVODOPA/BENSERAZIDE 100/25MG NOCTE
  4. BENSERAZIDE HYDROCHLORIDE\LEVODOPA [Concomitant]
     Active Substance: BENSERAZIDE HYDROCHLORIDE\LEVODOPA
     Indication: Product used for unknown indication
     Dosage: SLOW RELEASE
  5. AMANTADINE [Concomitant]
     Active Substance: AMANTADINE
     Indication: Product used for unknown indication
     Dosage: AMANTADINE 100MG MANE
  6. BUDESONIDE [Concomitant]
     Active Substance: BUDESONIDE
     Indication: Product used for unknown indication
     Dosage: BUDESONIDE 3MG MANE
  7. VITAMIN D [Concomitant]
     Active Substance: VITAMIN D NOS
     Indication: Product used for unknown indication
     Dosage: VITAMIN D 1000 UNITS MANE
  8. NEBIVOLOL [Concomitant]
     Active Substance: NEBIVOLOL
     Indication: Product used for unknown indication
     Dosage: NEBIVOLOL 5MG X 0.5 BD
  9. MELATONIN [Concomitant]
     Active Substance: MELATONIN
     Indication: Product used for unknown indication
     Dosage: MELATONIN CR 2MG X 3 NOCTE
  10. ASPIRIN [Concomitant]
     Active Substance: ASPIRIN
     Indication: Product used for unknown indication
     Dosage: ASPIRIN 100MG MANE
  11. FLUDROCORTISONE [Concomitant]
     Active Substance: FLUDROCORTISONE
     Indication: Product used for unknown indication
     Dosage: FLUDROCORTISONE 100MCG X 2 MANE
  12. RASAGILINE [Concomitant]
     Active Substance: RASAGILINE\RASAGILINE MESYLATE
     Indication: Product used for unknown indication

REACTIONS (19)
  - Atrial tachycardia [Unknown]
  - Orthostatic hypotension [Unknown]
  - Cognitive disorder [Unknown]
  - Dyskinesia [Recovering/Resolving]
  - Colitis microscopic [Unknown]
  - Coeliac disease [Unknown]
  - Mobility decreased [Not Recovered/Not Resolved]
  - Fall [Unknown]
  - Tremor [Unknown]
  - Middle insomnia [Unknown]
  - Memory impairment [Unknown]
  - On and off phenomenon [Unknown]
  - Confusional state [Unknown]
  - Parkinson^s disease [Unknown]
  - Cerebrovascular disorder [Unknown]
  - Constipation [Unknown]
  - Gastrointestinal disorder [Unknown]
  - Cerebral atrophy [Not Recovered/Not Resolved]
  - Cerebral small vessel ischaemic disease [Unknown]

NARRATIVE: CASE EVENT DATE: 20200101
